FAERS Safety Report 5902583-9 (Version None)
Quarter: 2008Q3

REPORT INFORMATION
  Report Type: 
  Country: None (occurrence: None)
  Receive Date: 20080924
  Receipt Date: 20080911
  Transmission Date: 20090109
  Serious: Yes (Death, Hospitalization, Other)
  Sender: FDA-Public Use
  Company Number: 52409

PATIENT
  Age: 9 Year
  Sex: Female

DRUGS (1)
  1. METHOTREXATE [Suspect]
     Indication: B PRECURSOR TYPE ACUTE LEUKAEMIA

REACTIONS (5)
  - HEPATOTOXICITY [None]
  - PERIORBITAL OEDEMA [None]
  - SKIN TOXICITY [None]
  - STOMATITIS [None]
  - TOXIC EPIDERMAL NECROLYSIS [None]
